FAERS Safety Report 5443587-2 (Version None)
Quarter: 2007Q3

REPORT INFORMATION
  Report Type: 
  Country: None (occurrence: None)
  Receive Date: 20070905
  Receipt Date: 20070828
  Transmission Date: 20080115
  Serious: Yes (Other)
  Sender: FDA-Public Use
  Company Number: JP-ASTRAZENECA-2007AP05390

PATIENT
  Age: 40 Year
  Sex: Female

DRUGS (1)
  1. TENORMIN [Suspect]
     Dosage: 50MG X 8 TABLETS EVERY 10 HOURS
     Route: 048

REACTIONS (4)
  - BLOOD GASES ABNORMAL [None]
  - COMA [None]
  - OVERDOSE [None]
  - SUICIDE ATTEMPT [None]
